FAERS Safety Report 16143623 (Version 1)
Quarter: 2019Q2

REPORT INFORMATION
  Report Type: Spontaneous
  Country: FR (occurrence: FR)
  Receive Date: 20190401
  Receipt Date: 20190401
  Transmission Date: 20190711
  Serious: Yes (Other)
  Sender: FDA-Public Use
  Company Number: FR-TEVA-2019-FR-1031710

PATIENT
  Age: 37 Year
  Sex: Female
  Weight: 72 kg

DRUGS (2)
  1. DESLORATADINE SANDOZ 5 MG, COMPRIME PELLICULE [Concomitant]
     Indication: HYPERSENSITIVITY
     Dosage: 1 DOSAGE FORMS DAILY;
     Route: 048
     Dates: start: 20150701
  2. MONTELUKAST TEVA 10 MG, COMPRIME PELLICULE [Suspect]
     Active Substance: MONTELUKAST SODIUM
     Indication: HYPERSENSITIVITY
     Dosage: 1 DOSAGE FORMS DAILY;
     Route: 048
     Dates: start: 20181101, end: 20190114

REACTIONS (3)
  - Sleep disorder [Not Recovered/Not Resolved]
  - Affective disorder [Recovering/Resolving]
  - Suicidal ideation [Recovering/Resolving]

NARRATIVE: CASE EVENT DATE: 20181201
